FAERS Safety Report 24939900 (Version 1)
Quarter: 2025Q1

REPORT INFORMATION
  Report Type: Spontaneous
  Country: NL (occurrence: NL)
  Receive Date: 20250207
  Receipt Date: 20250207
  Transmission Date: 20250409
  Serious: Yes (Hospitalization, Other)
  Sender: SANOFI AVENTIS
  Company Number: None

PATIENT
  Age: 86 Year
  Sex: Female

DRUGS (1)
  1. VANDETANIB [Suspect]
     Active Substance: VANDETANIB
     Indication: Thyroid cancer metastatic
     Dosage: 200 MG, QD(1X PER DAG 2 STUKS)
     Route: 048
     Dates: start: 20241025

REACTIONS (2)
  - Pyelonephritis [Unknown]
  - Acute kidney injury [Unknown]
